FAERS Safety Report 16694616 (Version 6)
Quarter: 2021Q1

REPORT INFORMATION
  Report Type: Spontaneous
  Country: US (occurrence: US)
  Receive Date: 20190812
  Receipt Date: 20210315
  Transmission Date: 20210419
  Serious: Yes (Other)
  Sender: FDA-Public Use
  Company Number: PHEH2019US032448

PATIENT
  Sex: Female

DRUGS (1)
  1. RECLAST [Suspect]
     Active Substance: ZOLEDRONIC ACID
     Indication: PRODUCT USED FOR UNKNOWN INDICATION
     Dosage: UNK
     Route: 065
     Dates: start: 2017

REACTIONS (13)
  - Alopecia [Unknown]
  - Jaw fracture [Unknown]
  - Infection [Unknown]
  - Skin haemorrhage [Unknown]
  - Pyrexia [Unknown]
  - Pain [Unknown]
  - Rib fracture [Unknown]
  - Gingival disorder [Unknown]
  - Tooth loss [Unknown]
  - Asplenia [Unknown]
  - Lymphadenopathy [Unknown]
  - Malaise [Unknown]
  - Pruritus [Unknown]
